FAERS Safety Report 11405235 (Version 2)
Quarter: 2016Q2

REPORT INFORMATION
  Report Type: Report from Study
  Country: KR (occurrence: KR)
  Receive Date: 20150821
  Receipt Date: 20160512
  Transmission Date: 20160815
  Serious: Yes (Death)
  Sender: FDA-Public Use
  Company Number: KR-OTSUKA-2015_007771

PATIENT
  Age: 55 Year
  Sex: Male

DRUGS (22)
  1. DICHLOZID [Concomitant]
     Indication: HYPERVOLAEMIA
  2. LASIX [Concomitant]
     Active Substance: FUROSEMIDE
     Indication: HYPONATRAEMIA
     Dosage: 1 AMPLE, QD
     Route: 042
     Dates: start: 20150812, end: 20150812
  3. TOLVAPTAN [Suspect]
     Active Substance: TOLVAPTAN
     Dosage: 30 MG, QD
     Route: 048
     Dates: start: 20150814, end: 20150817
  4. WARFARIN [Concomitant]
     Active Substance: WARFARIN
     Indication: HYPERVOLAEMIA
  5. TOLVAPTAN [Suspect]
     Active Substance: TOLVAPTAN
     Indication: HYPONATRAEMIA
     Dosage: 15 MG, BID
     Route: 048
     Dates: start: 20150812, end: 20150812
  6. K-CONTIN [Concomitant]
     Indication: HYPONATRAEMIA
     Dosage: 1200 MG, QD
     Route: 048
     Dates: start: 20150810, end: 20150817
  7. WARFARIN [Concomitant]
     Active Substance: WARFARIN
     Indication: HYPONATRAEMIA
     Dosage: 2 MG, QD
     Route: 048
     Dates: start: 20150804, end: 20150815
  8. TRITTICO [Concomitant]
     Active Substance: TRAZODONE HYDROCHLORIDE
     Indication: HYPONATRAEMIA
     Dosage: 50 MG, QD
     Route: 048
     Dates: start: 20150812, end: 20150812
  9. LASIX [Concomitant]
     Active Substance: FUROSEMIDE
     Indication: HYPERVOLAEMIA
  10. STILNOX [Concomitant]
     Active Substance: ZOLPIDEM TARTRATE
     Indication: PRODUCT USED FOR UNKNOWN INDICATION
     Dosage: 10 MG, QD
     Route: 048
     Dates: start: 20150727, end: 20150816
  11. ERDOS [Concomitant]
     Indication: HYPONATRAEMIA
     Dosage: 600 MG, QD
     Route: 048
     Dates: start: 20150727, end: 20150812
  12. DICHLOZID [Concomitant]
     Indication: HYPONATRAEMIA
     Dosage: 25 MG, QD
     Route: 048
     Dates: start: 20150727, end: 20150817
  13. TRITTICO [Concomitant]
     Active Substance: TRAZODONE HYDROCHLORIDE
     Indication: HYPERVOLAEMIA
  14. DUPHALAC-EASY [Concomitant]
     Indication: HYPONATRAEMIA
     Dosage: 85 ML, QD
     Route: 048
     Dates: start: 20150729, end: 20150817
  15. ERDOS [Concomitant]
     Indication: HYPERVOLAEMIA
  16. ALDACTONE [Concomitant]
     Active Substance: SPIRONOLACTONE
     Indication: HYPERVOLAEMIA
  17. TOLVAPTAN [Suspect]
     Active Substance: TOLVAPTAN
     Indication: HYPERVOLAEMIA
     Dosage: 60 MG, QD
     Route: 048
     Dates: start: 20150813, end: 20150813
  18. PHAZYME [Concomitant]
     Active Substance: DIMETHICONE 410
     Indication: PRODUCT USED FOR UNKNOWN INDICATION
     Dosage: 2 DF, QD
     Route: 048
     Dates: start: 20150728, end: 20150817
  19. K-CONTIN [Concomitant]
     Indication: HYPERVOLAEMIA
  20. DUPHALAC-EASY [Concomitant]
     Indication: HYPERVOLAEMIA
  21. ALDACTONE [Concomitant]
     Active Substance: SPIRONOLACTONE
     Indication: HYPONATRAEMIA
     Dosage: 50 MG, QD
     Route: 048
     Dates: start: 20150808, end: 20150816
  22. MOTILIDONE [Concomitant]
     Indication: PRODUCT USED FOR UNKNOWN INDICATION
     Dosage: 90 MG, QD
     Route: 048
     Dates: start: 20150730, end: 20150817

REACTIONS (1)
  - Disease progression [Fatal]

NARRATIVE: CASE EVENT DATE: 20150819
